FAERS Safety Report 17694743 (Version 2)
Quarter: 2020Q2

REPORT INFORMATION
  Report Type: Spontaneous
  Country: JP (occurrence: JP)
  Receive Date: 20200422
  Receipt Date: 20200617
  Transmission Date: 20200714
  Serious: Yes (Hospitalization, Other)
  Sender: FDA-Public Use
  Company Number: JP-BRISTOL-MYERS SQUIBB COMPANY-BMS-2019-048814

PATIENT
  Age: 83 Year
  Sex: Female
  Weight: 39.6 kg

DRUGS (10)
  1. PRAVASTATIN NA [Concomitant]
     Active Substance: PRAVASTATIN SODIUM
     Indication: PRODUCT USED FOR UNKNOWN INDICATION
     Dosage: 10 MILLIGRAM, QD, AFTER BREAKFAST
     Route: 048
     Dates: start: 201407
  2. DENOTAS [Concomitant]
     Active Substance: CALCIUM CARBONATE\CHOLECALCIFEROL\MAGNESIUM CARBONATE
     Indication: PRODUCT USED FOR UNKNOWN INDICATION
     Dosage: 2 DOSAGE FORM, Q8H, AFTER EACH MEAL
     Route: 048
     Dates: start: 20190304
  3. MUCOSTA [Concomitant]
     Active Substance: REBAMIPIDE
     Indication: PRODUCT USED FOR UNKNOWN INDICATION
     Dosage: 1 DOSAGE FORM, Q8H, AFTER EACH MEAL
     Route: 048
  4. ILUAMIX [Concomitant]
     Indication: PRODUCT USED FOR UNKNOWN INDICATION
     Dosage: 1 TAB, QD, AFTER BREAKFAST
     Route: 065
     Dates: start: 201407
  5. BAYASPIRIN [Concomitant]
     Active Substance: ASPIRIN
     Indication: PRODUCT USED FOR UNKNOWN INDICATION
     Dosage: 100 MILLIGRAM, QD, AFTER BREAKFAST
     Route: 048
     Dates: start: 201407
  6. OPDIVO [Suspect]
     Active Substance: NIVOLUMAB
     Indication: METASTATIC RENAL CELL CARCINOMA
     Dosage: 240 MILLIGRAM
     Route: 041
     Dates: start: 20181112, end: 20190415
  7. PHELLOBERIN [Concomitant]
     Active Substance: BERBERINE\GERANIUM
     Indication: PRODUCT USED FOR UNKNOWN INDICATION
     Dosage: 2 DOSAGE FORM, Q8H, AFTER EACH MEAL
     Route: 048
     Dates: start: 201407
  8. TAKEPRON [Concomitant]
     Active Substance: LANSOPRAZOLE
     Indication: PRODUCT USED FOR UNKNOWN INDICATION
     Dosage: 15 MILLIGRAM, QD  (AFTER BREAKFAST)
     Route: 048
  9. LASIX [Concomitant]
     Active Substance: FUROSEMIDE
     Indication: PRODUCT USED FOR UNKNOWN INDICATION
     Dosage: 20 MILLIGRAM, QD, AFTER BREAKFAST
     Route: 048
     Dates: start: 20190304
  10. FERROMIA [Concomitant]
     Active Substance: SODIUM FERROUS CITRATE
     Indication: PRODUCT USED FOR UNKNOWN INDICATION
     Dosage: 50 MILLIGRAM, QD, AFTER BREAKFAST
     Route: 048

REACTIONS (1)
  - Fulminant type 1 diabetes mellitus [Not Recovered/Not Resolved]

NARRATIVE: CASE EVENT DATE: 20190509
